FAERS Safety Report 5948854-1 (Version None)
Quarter: 2008Q4

REPORT INFORMATION
  Report Type: 
  Country: None (occurrence: None)
  Receive Date: 20081111
  Receipt Date: 20081103
  Transmission Date: 20090506
  Serious: Yes (Other)
  Sender: FDA-Public Use
  Company Number: US-JNJCH-2008053783

PATIENT
  Age: 2 Year
  Sex: Male

DRUGS (1)
  1. PURELL WITH ALOE [Suspect]
     Indication: ACCIDENTAL EXPOSURE
     Dosage: TEXT:ABOUT 1/2 OUNCE ONCE
     Route: 047
     Dates: start: 20081103, end: 20081103

REACTIONS (2)
  - ACCIDENTAL EXPOSURE [None]
  - APPLICATION SITE IRRITATION [None]
